FAERS Safety Report 19463913 (Version 1)
Quarter: 2021Q2

REPORT INFORMATION
  Report Type: Spontaneous
  Country: US (occurrence: US)
  Receive Date: 20210625
  Receipt Date: 20210625
  Transmission Date: 20210717
  Serious: No
  Sender: FDA-Public Use
  Company Number: US-SA-2021SA209272

PATIENT
  Sex: Female

DRUGS (22)
  1. ESTRADIOL. [Concomitant]
     Active Substance: ESTRADIOL
     Dosage: UNK, QW
  2. CARDIZEM [Concomitant]
     Active Substance: DILTIAZEM HYDROCHLORIDE
     Dosage: 30 MG
  3. VITAMIN D3 [Concomitant]
     Active Substance: CHOLECALCIFEROL
  4. CELEXA [CELECOXIB] [Concomitant]
     Active Substance: CELECOXIB
     Dosage: 10 MG
  5. PROAIR HFA [Concomitant]
     Active Substance: ALBUTEROL SULFATE
     Dosage: 90 UG
  6. TOPAMAX [Concomitant]
     Active Substance: TOPIRAMATE
     Dosage: 10 MG
  7. ZINC. [Concomitant]
     Active Substance: ZINC
     Dosage: 66 MG
  8. CRESTOR [Concomitant]
     Active Substance: ROSUVASTATIN CALCIUM
     Dosage: 5 MG
  9. PREDNISOLONE. [Concomitant]
     Active Substance: PREDNISOLONE
  10. EXCEDRIN MIGRAINE [Concomitant]
     Active Substance: ACETAMINOPHEN\ASPIRIN\CAFFEINE
  11. GABAPENTIN. [Concomitant]
     Active Substance: GABAPENTIN
     Dosage: 100 MG
  12. PREDNISONE. [Concomitant]
     Active Substance: PREDNISONE
     Dosage: 10 MG
  13. TOBRAMYCIN. [Concomitant]
     Active Substance: TOBRAMYCIN
  14. DUPIXENT [Suspect]
     Active Substance: DUPILUMAB
     Indication: ASTHMA
     Dosage: 200 MG, QOW
     Route: 058
  15. NEXIUM [Concomitant]
     Active Substance: ESOMEPRAZOLE MAGNESIUM
     Dosage: 20 MG
  16. WELLBUTRIN SR [Concomitant]
     Active Substance: BUPROPION HYDROCHLORIDE
     Dosage: 100 MG
  17. BUMETANIDE. [Concomitant]
     Active Substance: BUMETANIDE
     Dosage: 0.25 MG/ML
  18. RHINOCORT ALLERGY [Concomitant]
     Active Substance: BUDESONIDE
     Dosage: 32 UG
  19. BUSPIRONE HCL [Concomitant]
     Active Substance: BUSPIRONE HYDROCHLORIDE
     Dosage: 10 MG
  20. LEVALBUTEROL [LEVOSALBUTAMOL] [Concomitant]
     Active Substance: LEVALBUTEROL
     Dosage: UNK
  21. VITAMIN C [Concomitant]
     Active Substance: ASCORBIC ACID
     Dosage: 1000 MG
  22. ECHINACEA [ECHINACEA PURPUREA ROOT] [Concomitant]
     Dosage: 125 MG

REACTIONS (7)
  - Asthma [Unknown]
  - Dyspnoea [Unknown]
  - Lung disorder [Unknown]
  - Middle insomnia [Unknown]
  - Chest discomfort [Unknown]
  - Cough [Unknown]
  - Wheezing [Unknown]
